FAERS Safety Report 10083222 (Version 1)
Quarter: 2014Q2

REPORT INFORMATION
  Report Type: Spontaneous
  Country: US (occurrence: US)
  Receive Date: 20140417
  Receipt Date: 20140417
  Transmission Date: 20141212
  Serious: No
  Sender: FDA-Public Use
  Company Number: US-009507513-1404USA005873

PATIENT
  Sex: Male

DRUGS (5)
  1. RALTEGRAVIR POTASSIUM [Suspect]
     Indication: HIV INFECTION
     Route: 048
  2. EMTRICITABINE [Concomitant]
     Indication: HIV INFECTION
  3. TENOFOVIR [Concomitant]
     Indication: HIV INFECTION
  4. RITONAVIR [Concomitant]
     Indication: HIV INFECTION
  5. DARUNAVIR [Concomitant]
     Indication: HIV INFECTION

REACTIONS (1)
  - Drug ineffective [Unknown]
